FAERS Safety Report 9112626 (Version 4)
Quarter: 2013Q3

REPORT INFORMATION
  Report Type: Spontaneous
  Country: JP (occurrence: JP)
  Receive Date: 20130211
  Receipt Date: 20130913
  Transmission Date: 20140515
  Serious: Yes (Other)
  Sender: FDA-Public Use
  Company Number: PHHY2012JP096147

PATIENT
  Sex: Female
  Weight: 1.01 kg

DRUGS (7)
  1. APRESOLIN [Suspect]
     Dosage: UNK UKN, UNK
     Route: 064
  2. NICARDIPINE [Suspect]
     Dosage: UNK UKN, UNK
     Route: 064
  3. METHYLDOPA [Suspect]
     Dosage: UNK UKN, UNK
     Route: 064
  4. MAGNESIUM SULFATE INJ [Suspect]
     Dosage: UNK UKN, UNK
     Route: 064
  5. BETAMETHASONE [Suspect]
     Dosage: 12 MG, MATERNAL DOSE
     Route: 064
  6. BETAMETHASONE [Suspect]
     Dosage: 24 MG, MATERNAL DOSE
     Route: 064
  7. ANAESTHETICS [Concomitant]
     Dosage: UNK
     Route: 064

REACTIONS (3)
  - Premature baby [Unknown]
  - Low birth weight baby [Unknown]
  - Foetal exposure during pregnancy [Unknown]
